FAERS Safety Report 7443399-4 (Version None)
Quarter: 2011Q2

REPORT INFORMATION
  Report Type: 
  Country: None (occurrence: None)
  Receive Date: 20110428
  Receipt Date: 20110419
  Transmission Date: 20111010
  Serious: Yes (Other)
  Sender: FDA-Public Use
  Company Number: FR-ABBOTT-11P-056-0720454-00

PATIENT
  Age: 50 Year
  Sex: Female

DRUGS (5)
  1. ULTIVA [Suspect]
     Indication: PRODUCT USED FOR UNKNOWN INDICATION
     Dates: start: 20110406, end: 20110406
  2. DIPRIVAN [Suspect]
     Indication: PRODUCT USED FOR UNKNOWN INDICATION
     Dates: start: 20110406, end: 20110406
  3. CISATRACURIUM BESILATE [Concomitant]
     Indication: PRODUCT USED FOR UNKNOWN INDICATION
  4. SEVOFLURANE [Suspect]
     Indication: INDUCTION OF ANAESTHESIA
     Dates: start: 20110406, end: 20110406
  5. ROCURONIUM BROMIDE [Suspect]
     Indication: INDUCTION OF ANAESTHESIA
     Dates: start: 20110406, end: 20110406

REACTIONS (5)
  - ANAPHYLACTIC REACTION [None]
  - TACHYCARDIA [None]
  - HYPERTENSION [None]
  - ERYTHEMA [None]
  - HYPOTENSION [None]
